FAERS Safety Report 4718256-4 (Version None)
Quarter: 2005Q3

REPORT INFORMATION
  Report Type: 
  Country: None (occurrence: None)
  Receive Date: 20050718
  Receipt Date: 20050718
  Transmission Date: 20060218
  Serious: Yes (Life-Threatening, Hospitalization)
  Sender: FDA-Public Use
  Company Number: None

PATIENT
  Age: 46 Year
  Sex: Female
  Weight: 65.318 kg

DRUGS (4)
  1. XYREM [Suspect]
     Indication: CATAPLEXY
     Dosage: 2.5 LIQUID BID ORAL
     Route: 048
     Dates: start: 20030128, end: 20030130
  2. XYREM [Suspect]
     Indication: NARCOLEPSY
     Dosage: 2.5 LIQUID BID ORAL
     Route: 048
     Dates: start: 20030128, end: 20030130
  3. MORPHINE [Concomitant]
  4. FENTANYL [Concomitant]

REACTIONS (7)
  - BURNING SENSATION [None]
  - CATAPLEXY [None]
  - DRUG INEFFECTIVE [None]
  - HAEMANGIOMA [None]
  - MENINGORRHAGIA [None]
  - PAIN [None]
  - TRANSIENT ISCHAEMIC ATTACK [None]
